FAERS Safety Report 15147366 (Version 3)
Quarter: 2018Q3

REPORT INFORMATION
  Report Type: Report from Study
  Country: JP (occurrence: JP)
  Receive Date: 20180716
  Receipt Date: 20180813
  Transmission Date: 20181010
  Serious: Yes (Hospitalization, Other)
  Sender: FDA-Public Use
  Company Number: JP-BRISTOL-MYERS SQUIBB COMPANY-BMS-2018-062793

PATIENT
  Age: 64 Year
  Sex: Male
  Weight: 49.75 kg

DRUGS (22)
  1. RINDERON V [Concomitant]
     Active Substance: BETAMETHASONE VALERATE
     Indication: RASH
     Dosage: UNK UNK, PRN
     Route: 062
     Dates: start: 20180605
  2. FLOMOX                             /01418603/ [Concomitant]
     Active Substance: CEFCAPENE PIVOXIL HYDROCHLORIDE HYDRATE
     Indication: PRODUCT USED FOR UNKNOWN INDICATION
     Dosage: 1 TAB, TID
     Route: 048
     Dates: start: 20180705
  3. PACLITAXEL. [Suspect]
     Active Substance: PACLITAXEL
     Indication: NON-SMALL CELL LUNG CANCER
     Dosage: 200 MG/M2, Q3WK
     Route: 042
     Dates: start: 20180529
  4. BEVACIZUMAB. [Suspect]
     Active Substance: BEVACIZUMAB
     Indication: NON-SMALL CELL LUNG CANCER
     Dosage: 15 MG/KG, Q3WK
     Route: 042
     Dates: start: 20180529
  5. BILANOA [Concomitant]
     Active Substance: BILASTINE
     Indication: RASH
     Dosage: 1 TAB, QD
     Route: 048
     Dates: start: 20180622
  6. BLINDED NIVOLUMAB [Suspect]
     Active Substance: NIVOLUMAB
     Indication: NON-SMALL CELL LUNG CANCER
     Dosage: 360 MG/KG, Q3WK
     Route: 042
     Dates: start: 20180529
  7. BROTIZOLAM [Concomitant]
     Active Substance: BROTIZOLAM
     Indication: INSOMNIA
     Dosage: 2 TAB, PRN
     Route: 048
  8. KETOPROFEN. [Concomitant]
     Active Substance: KETOPROFEN
     Indication: MYALGIA
     Dosage: 1 DF=1 SHEET, UNK
     Route: 062
     Dates: start: 20180601
  9. BLINDED PLACEBO [Suspect]
     Active Substance: INVESTIGATIONAL PRODUCT
     Indication: NON-SMALL CELL LUNG CANCER
     Dosage: 360 MG/KG, Q3WK
     Route: 042
     Dates: start: 20180529
  10. KETOPROFEN. [Concomitant]
     Active Substance: KETOPROFEN
     Indication: ARTHRALGIA
     Route: 065
  11. TRAMADOL                           /00599202/ [Concomitant]
     Active Substance: TRAMADOL
     Indication: OROPHARYNGEAL PAIN
     Dosage: 1 TAB, PRN
     Route: 048
     Dates: start: 20180611
  12. METOCLOPRAMIDE. [Concomitant]
     Active Substance: METOCLOPRAMIDE
     Indication: NAUSEA
     Dosage: 1 TAB, PRN
     Route: 048
     Dates: start: 20180618
  13. CARBOPLATIN. [Suspect]
     Active Substance: CARBOPLATIN
     Indication: NON-SMALL CELL LUNG CANCER
     Dosage: 1 DF, Q3WK
     Route: 042
     Dates: start: 20180529
  14. AMLODIPINE                         /00972402/ [Concomitant]
     Active Substance: AMLODIPINE BESYLATE
     Indication: HYPERTENSION
     Dosage: 2 TAB, QD
     Route: 048
  15. LOXOPROFEN [Concomitant]
     Active Substance: LOXOPROFEN
     Indication: ARTHRALGIA
     Route: 065
  16. TRAMADOL                           /00599202/ [Concomitant]
     Active Substance: TRAMADOL
     Indication: TOOTHACHE
     Route: 065
  17. BETANIS [Concomitant]
     Active Substance: MIRABEGRON
     Indication: POLLAKIURIA
     Dosage: 1 TAB, QD
     Route: 048
     Dates: start: 20180625
  18. FLOMOX                             /01418603/ [Concomitant]
     Active Substance: CEFCAPENE PIVOXIL HYDROCHLORIDE HYDRATE
     Indication: PERIODONTITIS
     Dosage: 3 TAB, QD
     Route: 048
     Dates: start: 20180628
  19. MAGMITT [Concomitant]
     Active Substance: MAGNESIUM OXIDE
     Indication: CONSTIPATION
     Dosage: UNK
     Route: 048
     Dates: start: 20180603
  20. NEXIUM [Concomitant]
     Active Substance: ESOMEPRAZOLE MAGNESIUM
     Indication: GASTRITIS PROPHYLAXIS
     Dosage: 1 DF, QD
     Route: 048
     Dates: start: 20180621
  21. LOXOPROFEN [Concomitant]
     Active Substance: LOXOPROFEN
     Indication: MYALGIA
     Dosage: 1 TAB, TID
     Route: 048
     Dates: start: 20180601
  22. LOXOPROFEN [Concomitant]
     Active Substance: LOXOPROFEN
     Indication: TOOTHACHE
     Route: 065

REACTIONS (2)
  - Febrile neutropenia [Recovered/Resolved]
  - Nausea [Recovered/Resolved]

NARRATIVE: CASE EVENT DATE: 20180629
